FAERS Safety Report 11812538 (Version 1)
Quarter: 2015Q4

REPORT INFORMATION
  Report Type: Spontaneous
  Country: US (occurrence: US)
  Receive Date: 20151208
  Receipt Date: 20151208
  Transmission Date: 20160305
  Serious: No
  Sender: FDA-Public Use
  Company Number: US-TAKEDA-2015TUS006999

PATIENT
  Age: 43 Year
  Sex: Male
  Weight: 97.96 kg

DRUGS (3)
  1. HYOSCYAMINE. [Concomitant]
     Active Substance: HYOSCYAMINE
     Indication: COLITIS ULCERATIVE
     Dosage: 0.375 MG
  2. ENTYVIO [Suspect]
     Active Substance: VEDOLIZUMAB
     Indication: COLITIS ULCERATIVE
     Dosage: 300 MG, UNK
     Route: 042
     Dates: start: 20141112
  3. ASACOL [Concomitant]
     Active Substance: MESALAMINE
     Indication: COLITIS ULCERATIVE
     Dosage: 800 MG

REACTIONS (1)
  - Gravitational oedema [Recovering/Resolving]

NARRATIVE: CASE EVENT DATE: 201503
